FAERS Safety Report 16795379 (Version 1)
Quarter: 2019Q3

REPORT INFORMATION
  Report Type: Spontaneous
  Country: FR (occurrence: FR)
  Receive Date: 20190911
  Receipt Date: 20190911
  Transmission Date: 20191005
  Serious: Yes (Life-Threatening, Other)
  Sender: FDA-Public Use
  Company Number: FR-PFIZER INC-2019388283

PATIENT
  Age: 42 Year
  Sex: Female
  Weight: 49.8 kg

DRUGS (25)
  1. EMEND [Suspect]
     Active Substance: APREPITANT
     Indication: PROPHYLAXIS
     Dosage: 125 MG, 1X/DAY
     Route: 048
     Dates: start: 20190613, end: 20190614
  2. PLITICAN [Concomitant]
     Active Substance: ALIZAPRIDE HYDROCHLORIDE
     Dosage: UNK
     Route: 040
     Dates: start: 20190621, end: 20190621
  3. PENTACARINAT [Concomitant]
     Active Substance: PENTAMIDINE ISETHIONATE
     Dosage: UNK
     Route: 045
     Dates: start: 20190625, end: 20190625
  4. CORTANCYL [Concomitant]
     Active Substance: PREDNISONE
     Dosage: UNK
     Route: 048
  5. ZYMAD [Concomitant]
     Active Substance: CHOLECALCIFEROL
     Dosage: UNK
     Route: 048
     Dates: start: 20190615, end: 20190615
  6. GENTAMICINE [GENTAMICIN] [Suspect]
     Active Substance: GENTAMICIN
     Dosage: 80 MG, 1X/DAY
     Route: 048
     Dates: start: 20190612, end: 20190616
  7. ENDOXAN [CYCLOPHOSPHAMIDE MONOHYDRATE] [Suspect]
     Active Substance: CYCLOPHOSPHAMIDE
     Indication: TRANSPLANT
     Dosage: 1.5 G, 1X/DAY
     Route: 041
     Dates: start: 20190613, end: 20190614
  8. PARACETAMOL [Suspect]
     Active Substance: ACETAMINOPHEN
     Indication: PAIN
     Dosage: 4 G, 1X/DAY
     Route: 041
     Dates: start: 20190617
  9. LOVENOX [Concomitant]
     Active Substance: ENOXAPARIN SODIUM
     Dosage: UNK
     Route: 058
     Dates: start: 20190618, end: 20190618
  10. PANTOPRAZOLE [Concomitant]
     Active Substance: PANTOPRAZOLE
     Route: 048
  11. ISOPTINE [Concomitant]
     Active Substance: VERAPAMIL HYDROCHLORIDE
     Dosage: UNK
     Route: 048
  12. ONDANSETRON HCL [Suspect]
     Active Substance: ONDANSETRON HYDROCHLORIDE
     Indication: PROPHYLAXIS
     Dosage: 8 MG, 1X/DAY
     Route: 040
     Dates: start: 20190613, end: 20190615
  13. UROMITEXAN [Suspect]
     Active Substance: MESNA
     Dosage: 3 G, 1X/DAY
     Route: 041
     Dates: start: 20190613, end: 20190614
  14. ZARZIO [Suspect]
     Active Substance: FILGRASTIM
     Dosage: 500 UG, 1X/DAY
     Route: 058
     Dates: start: 20190617, end: 20190624
  15. FUROSEMIDE. [Suspect]
     Active Substance: FUROSEMIDE
     Dosage: UNK UNK, DAILY (20 TO 40 MG PER DAY)
     Route: 040
     Dates: start: 20190612
  16. RAMIPRIL. [Concomitant]
     Active Substance: RAMIPRIL
     Dosage: UNK
     Route: 048
  17. DIFFU K [Concomitant]
     Active Substance: POTASSIUM CHLORIDE
     Dosage: UNK
     Route: 048
     Dates: start: 20190624
  18. MOVICOL [Concomitant]
     Active Substance: POLYETHYLENE GLYCOL 3350\POTASSIUM CHLORIDE\SODIUM BICARBONATE\SODIUM CHLORIDE
     Dosage: UNK
     Route: 048
     Dates: start: 20190624
  19. MORPHINE [Concomitant]
     Active Substance: MORPHINE
     Dosage: UNK
     Route: 041
     Dates: start: 20190621
  20. VENOFER [Suspect]
     Active Substance: IRON SUCROSE
     Dosage: 300 MG, 1X/DAY
     Route: 041
     Dates: start: 20190617, end: 20190617
  21. NEFOPAM [Concomitant]
     Active Substance: NEFOPAM
     Dosage: UNK
     Route: 041
     Dates: start: 20190622, end: 20190624
  22. METHYLPREDNISOLONE SODIUM SUCCINATE. [Suspect]
     Active Substance: METHYLPREDNISOLONE SODIUM SUCCINATE
     Dosage: 40 MG, 1X/DAY
     Route: 041
     Dates: start: 20190613, end: 20190614
  23. VALACICLOVIR HYDROCHLORIDE [Suspect]
     Active Substance: VALACYCLOVIR HYDROCHLORIDE
     Indication: PROPHYLAXIS
     Dosage: 1000 MG, 1X/DAY
     Route: 048
     Dates: start: 20190620, end: 20190624
  24. ERY [ERYTHROMYCIN] [Concomitant]
     Dosage: UNK
     Route: 048
  25. SERETIDE [Concomitant]
     Active Substance: FLUTICASONE PROPIONATE\SALMETEROL XINAFOATE
     Dosage: UNK
     Route: 048

REACTIONS (2)
  - Condition aggravated [Recovered/Resolved]
  - Blood phosphorus decreased [Not Recovered/Not Resolved]

NARRATIVE: CASE EVENT DATE: 20190617
